FAERS Safety Report 4554885-9 (Version None)
Quarter: 2004Q4

REPORT INFORMATION
  Report Type: 
  Country: None (occurrence: None)
  Receive Date: 20041222
  Receipt Date: 20040913
  Transmission Date: 20050328
  Serious: Yes (Death, Hospitalization)
  Sender: FDA-Public Use
  Company Number: 209022

PATIENT
  Age: 64 Year
  Sex: Male
  Weight: 89.8 kg

DRUGS (10)
  1. AVASTIN [Suspect]
     Indication: COLORECTAL CANCER METASTATIC
     Dosage: 475 MG, Q2W, INTRAVENOUS
     Route: 042
     Dates: start: 20040714
  2. OXALIPLATIN (OXALIPLATIN) [Concomitant]
  3. FLUOROURACIL [Concomitant]
  4. LEUCOVORIN CALCIUM [Concomitant]
  5. LACTULOSE [Concomitant]
  6. ALTACE [Concomitant]
  7. CELEBREX [Concomitant]
  8. PREVACID [Concomitant]
  9. IRON (IRON NOS) [Concomitant]
  10. ZOSYN [Concomitant]

REACTIONS (1)
  - ACUTE MYOCARDIAL INFARCTION [None]
